FAERS Safety Report 8062728-4 (Version None)
Quarter: 2011Q4

REPORT INFORMATION
  Report Type: 
  Country: None (occurrence: None)
  Receive Date: 20111220
  Receipt Date: 20110906
  Transmission Date: 20120403
  Serious: Yes (Life-Threatening)
  Sender: FDA-Public Use
  Company Number: PHHY2011US48724

PATIENT
  Age: 41 Year
  Sex: Male
  Weight: 89 kg

DRUGS (8)
  1. FAMOTIDINE [Concomitant]
  2. VALACYCLOVIR [Concomitant]
  3. MEPRON [Concomitant]
  4. PREDNISONE TAB [Concomitant]
  5. NYSTATIN [Concomitant]
  6. PROGRAF [Concomitant]
  7. NICARDIPINE HCL [Concomitant]
  8. MYFORTIC [Suspect]
     Indication: PROPHYLAXIS AGAINST TRANSPLANT REJECTION
     Dosage: 1080 MG, DAILY, ORAL
     Route: 048
     Dates: start: 20110405, end: 20110428

REACTIONS (2)
  - EPSTEIN-BARR VIRUS INFECTION [None]
  - EPSTEIN-BARR VIRUS ASSOCIATED LYMPHOPROLIFERATIVE DISORDER [None]
